APPROVED DRUG PRODUCT: FOSAPREPITANT DIMEGLUMINE
Active Ingredient: FOSAPREPITANT DIMEGLUMINE
Strength: EQ 150MG BASE/VIAL
Dosage Form/Route: POWDER;INTRAVENOUS
Application: A204025 | Product #001
Applicant: ACCORD HEALTHCARE INC
Approved: Aug 26, 2020 | RLD: No | RS: No | Type: DISCN